FAERS Safety Report 5574535-2 (Version None)
Quarter: 2007Q4

REPORT INFORMATION
  Report Type: 
  Country: None (occurrence: None)
  Receive Date: 20071227
  Receipt Date: 20071220
  Transmission Date: 20080405
  Serious: Yes (Hospitalization)
  Sender: FDA-Public Use
  Company Number: TH-ASTRAZENECA-2007AP07783

PATIENT
  Age: 19687 Day
  Sex: Female

DRUGS (14)
  1. IRESSA [Suspect]
     Indication: NON-SMALL CELL LUNG CANCER
     Route: 048
     Dates: start: 20070705, end: 20071103
  2. IRESSA [Suspect]
     Route: 048
     Dates: start: 20071108
  3. ATENOLOL [Concomitant]
     Indication: HYPERTENSION
     Route: 048
     Dates: start: 20070608
  4. AMLODIPINE [Concomitant]
     Indication: HYPERTENSION
     Route: 048
     Dates: start: 20070610
  5. MIRACID [Concomitant]
     Indication: PROPHYLAXIS
     Route: 048
     Dates: start: 20070608
  6. NORGESIC [Concomitant]
     Indication: PAIN
     Route: 048
     Dates: start: 20070622
  7. SENOKOT [Concomitant]
     Indication: CONSTIPATION
     Route: 048
     Dates: start: 20070613
  8. ASPIRIN [Concomitant]
     Indication: CHEST PAIN
     Route: 048
     Dates: start: 20070913
  9. BENOVATE CREAM [Concomitant]
     Indication: RASH
     Dates: start: 20071018, end: 20071024
  10. ATARAX [Concomitant]
     Indication: RASH
     Route: 048
     Dates: start: 20071025, end: 20071103
  11. LORATADINE [Concomitant]
     Indication: RASH
     Route: 048
     Dates: start: 20071025
  12. TOPICORT [Concomitant]
     Indication: RASH
     Dates: start: 20071025, end: 20071103
  13. 10% UREA IN 0.1%TA CREAM [Concomitant]
     Indication: RASH
     Dates: start: 20071025, end: 20071103
  14. 10% UREA IN 0.1%TA CREAM [Concomitant]
     Dates: start: 20071108

REACTIONS (1)
  - BENIGN INTRACRANIAL HYPERTENSION [None]
